FAERS Safety Report 12685769 (Version 1)
Quarter: 2016Q3

REPORT INFORMATION
  Report Type: Spontaneous
  Country: US (occurrence: US)
  Receive Date: 20160825
  Receipt Date: 20160825
  Transmission Date: 20161109
  Serious: Yes (Other)
  Sender: FDA-Public Use
  Company Number: US-NOVOPROD-478359

PATIENT
  Age: 63 Year
  Sex: Female

DRUGS (4)
  1. INSULIN [Concomitant]
     Active Substance: INSULIN NOS
     Indication: TYPE 2 DIABETES MELLITUS
     Dosage: BASAL INSULIN
  2. INSULIN [Concomitant]
     Active Substance: INSULIN NOS
     Indication: DIABETIC NEPHROPATHY
  3. VICTOZA [Suspect]
     Active Substance: LIRAGLUTIDE
     Indication: TYPE 2 DIABETES MELLITUS
     Dosage: 0.6 MG, QD
     Route: 058
     Dates: start: 20151221
  4. VICTOZA [Suspect]
     Active Substance: LIRAGLUTIDE
     Indication: DIABETIC NEPHROPATHY
     Dosage: 1.8 MG, QD
     Route: 058
     Dates: end: 20160112

REACTIONS (2)
  - Pancreatitis [Recovered/Resolved]
  - Impaired gastric emptying [Unknown]
